FAERS Safety Report 4767310-X (Version None)
Quarter: 2005Q3

REPORT INFORMATION
  Report Type: 
  Country: None (occurrence: None)
  Receive Date: 20050913
  Receipt Date: 20050901
  Transmission Date: 20060218
  Serious: Yes (Disabling)
  Sender: FDA-Public Use
  Company Number: GB-GLAXOSMITHKLINE-B0392611A

PATIENT
  Age: 69 Year
  Sex: Female
  Weight: 72.5 kg

DRUGS (12)
  1. AVANDIA [Suspect]
     Indication: DIABETES MELLITUS
     Dosage: 4MG PER DAY
     Route: 048
     Dates: start: 20050727, end: 20050802
  2. FOLIC ACID [Concomitant]
     Dosage: 5MG PER DAY
     Route: 048
     Dates: start: 19950101
  3. METHOTREXATE [Concomitant]
     Indication: PANNICULITIS
     Dosage: 10MG PER DAY
     Route: 048
     Dates: start: 19950101
  4. PREDNISOLONE [Concomitant]
     Dosage: 5MG PER DAY
     Route: 048
     Dates: start: 19930101
  5. MEPACRINE [Concomitant]
     Indication: PANNICULITIS
     Dosage: 100MG PER DAY
     Route: 048
     Dates: start: 19950101
  6. RALOXIFENE HCL [Concomitant]
     Indication: OSTEOPOROSIS
     Dosage: 60MG PER DAY
     Route: 048
     Dates: start: 20030101
  7. CALCICHEW D3 [Concomitant]
     Indication: OSTEOPOROSIS
     Dosage: 1.25G PER DAY
     Route: 048
     Dates: start: 20030101
  8. ALBUTEROL SULFATE HFA [Concomitant]
     Indication: WHEEZING
     Dates: start: 20040101
  9. SIMVASTATIN [Concomitant]
     Indication: DIABETES MELLITUS
     Dosage: 10MG PER DAY
     Route: 048
     Dates: start: 20040101
  10. GLICLAZIDE [Concomitant]
     Indication: DIABETES MELLITUS
     Dosage: 160MG PER DAY
     Route: 048
     Dates: start: 20040101
  11. LOSEC MUPS [Concomitant]
     Indication: DYSPEPSIA
     Dosage: 20MG PER DAY
     Route: 048
     Dates: start: 20010101
  12. ACETAMINOPHEN W/ CODEINE [Concomitant]
     Indication: OSTEOARTHRITIS
     Route: 048
     Dates: start: 20050307

REACTIONS (3)
  - COUGH [None]
  - DIZZINESS [None]
  - DYSPNOEA [None]
